FAERS Safety Report 10264431 (Version 1)
Quarter: 2014Q2

REPORT INFORMATION
  Report Type: Spontaneous
  Country: US (occurrence: US)
  Receive Date: 20140627
  Receipt Date: 20140627
  Transmission Date: 20141212
  Serious: Yes (Other)
  Sender: FDA-Public Use
  Company Number: US-ELI_LILLY_AND_COMPANY-US201406006818

PATIENT
  Age: 49 Year
  Sex: Male

DRUGS (2)
  1. ALIMTA [Suspect]
     Indication: NON-SMALL CELL LUNG CANCER
     Dosage: 500 MG, UNKNOWN
     Route: 065
  2. ALIMTA [Suspect]
     Dosage: 100 MG, UNKNOWN
     Route: 065

REACTIONS (1)
  - Oesophagitis haemorrhagic [Unknown]
